FAERS Safety Report 21727615 (Version 1)
Quarter: 2022Q4

REPORT INFORMATION
  Report Type: Report from Study
  Country: US (occurrence: US)
  Receive Date: 20221214
  Receipt Date: 20221214
  Transmission Date: 20230113
  Serious: Yes (Other)
  Sender: FDA-Public Use
  Company Number: US-ABBVIE-4227832

PATIENT
  Age: 66 Year
  Sex: Male

DRUGS (1)
  1. RINVOQ [Suspect]
     Active Substance: UPADACITINIB
     Indication: Rheumatoid arthritis
     Route: 058
     Dates: start: 202207

REACTIONS (7)
  - Loss of consciousness [Unknown]
  - Joint injury [Unknown]
  - Feeling cold [Unknown]
  - Chest pain [Unknown]
  - Joint swelling [Unknown]
  - Dyspnoea [Unknown]
  - Syncope [Unknown]

NARRATIVE: CASE EVENT DATE: 20221204
